FAERS Safety Report 15641604 (Version 2)
Quarter: 2018Q4

REPORT INFORMATION
  Report Type: Spontaneous
  Country: IT (occurrence: IT)
  Receive Date: 20181121
  Receipt Date: 20181129
  Transmission Date: 20190205
  Serious: Yes (Hospitalization)
  Sender: FDA-Public Use
  Company Number: IT-BRISTOL-MYERS SQUIBB COMPANY-BMS-2018-108205

PATIENT
  Age: 79 Year
  Sex: Female

DRUGS (1)
  1. ORENCIA [Suspect]
     Active Substance: ABATACEPT
     Indication: RHEUMATOID ARTHRITIS
     Dosage: 125 MG, WEEKLY
     Route: 065
     Dates: start: 20150317, end: 20180401

REACTIONS (2)
  - Neuroendocrine tumour [Recovered/Resolved with Sequelae]
  - Gastric neoplasm [Recovered/Resolved with Sequelae]

NARRATIVE: CASE EVENT DATE: 20180401
